FAERS Safety Report 20477885 (Version 3)
Quarter: 2022Q2

REPORT INFORMATION
  Report Type: Report from Study
  Country: US (occurrence: US)
  Receive Date: 20220216
  Receipt Date: 20220510
  Transmission Date: 20220721
  Serious: No
  Sender: FDA-Public Use
  Company Number: US-BIOVITRUM-2021US10877

PATIENT
  Age: 60 Year
  Sex: Female

DRUGS (1)
  1. KINERET [Suspect]
     Active Substance: ANAKINRA
     Indication: Still^s disease
     Route: 058
     Dates: start: 20211021

REACTIONS (11)
  - Nausea [Unknown]
  - Asthenia [Unknown]
  - Illness [Unknown]
  - COVID-19 [Unknown]
  - Injection site pain [Unknown]
  - Headache [Unknown]
  - Injection site erythema [Unknown]
  - Injection site mass [Unknown]
  - Injection site warmth [Unknown]
  - Product dose omission issue [Unknown]
  - Off label use [Not Recovered/Not Resolved]

NARRATIVE: CASE EVENT DATE: 20211021
